FAERS Safety Report 9332496 (Version 1)
Quarter: 2013Q2

REPORT INFORMATION
  Report Type: Spontaneous
  Country: CH (occurrence: None)
  Receive Date: 20130603
  Receipt Date: 20130603
  Transmission Date: 20140414
  Serious: Yes (Disabling)
  Sender: FDA-Public Use
  Company Number: SYM-2013-04185

PATIENT
  Age: 65 Year
  Sex: Male

DRUGS (2)
  1. FLAGYL [Suspect]
     Indication: CHOLANGITIS
     Route: 048
     Dates: start: 20121213, end: 201304
  2. CIPROFLOXACIN [Suspect]
     Indication: CHOLANGITIS
     Route: 048
     Dates: start: 20121213, end: 201304

REACTIONS (1)
  - Polyneuropathy [None]
